FAERS Safety Report 21207816 (Version 1)
Quarter: 2022Q3

REPORT INFORMATION
  Report Type: Spontaneous
  Country: CA (occurrence: CA)
  Receive Date: 20220812
  Receipt Date: 20220812
  Transmission Date: 20221027
  Serious: Yes (Other)
  Sender: FDA-Public Use
  Company Number: None

PATIENT
  Age: 54 Year
  Sex: Female

DRUGS (8)
  1. METHOTREXATE [Suspect]
     Active Substance: METHOTREXATE
     Indication: Pneumonitis
  2. ENBREL [Suspect]
     Active Substance: ETANERCEPT
     Indication: Product used for unknown indication
  3. RUXIENCE [Suspect]
     Active Substance: RITUXIMAB-PVVR
     Indication: Rheumatoid arthritis
     Route: 042
  4. SIMPONI [Suspect]
     Active Substance: GOLIMUMAB
     Indication: Product used for unknown indication
     Route: 058
  5. XELJANZ [Suspect]
     Active Substance: TOFACITINIB CITRATE
     Indication: Rheumatoid arthritis
     Route: 048
  6. ARAVA [Concomitant]
     Active Substance: LEFLUNOMIDE
     Indication: Diarrhoea
  7. HYDROXYCHLOROQUINE SULFATE [Concomitant]
     Active Substance: HYDROXYCHLOROQUINE SULFATE
     Indication: Corneal deposits
  8. ORENCIA [Concomitant]
     Active Substance: ABATACEPT
     Route: 042

REACTIONS (4)
  - Drug ineffective [Unknown]
  - Episcleritis [Not Recovered/Not Resolved]
  - Nodule [Not Recovered/Not Resolved]
  - Palindromic rheumatism [Not Recovered/Not Resolved]
